FAERS Safety Report 6635075-2 (Version None)
Quarter: 2010Q1

REPORT INFORMATION
  Report Type: 
  Country: None (occurrence: None)
  Receive Date: 20100315
  Receipt Date: 20100302
  Transmission Date: 20100710
  Serious: Yes (Other)
  Sender: FDA-Public Use
  Company Number: PHHY2010DE13399

PATIENT
  Sex: Male
  Weight: 93 kg

DRUGS (9)
  1. ALISKIREN ALI+ [Suspect]
     Indication: HYPERTENSION
     Dosage: UNK
     Dates: start: 20090226
  2. EXFORGE [Suspect]
     Dosage: UNK
  3. ORAL ANTIDIABETICS [Concomitant]
     Indication: DIABETES MELLITUS
     Dosage: UNK
  4. INSULIN [Concomitant]
     Indication: DIABETES MELLITUS
  5. ACE INHIBITOR NOS [Concomitant]
     Dosage: UNK
     Dates: end: 20090226
  6. CALCIUM ANTAGONIST [Concomitant]
  7. DIURETICS [Concomitant]
  8. ANTIPLATELET [Concomitant]
     Dosage: UNK
  9. STATIN [Concomitant]

REACTIONS (7)
  - ANGINA PECTORIS [None]
  - BLOOD PRESSURE INCREASED [None]
  - CATHETERISATION CARDIAC [None]
  - CORONARY ARTERY DISEASE [None]
  - HYPERCHOLESTEROLAEMIA [None]
  - MYOCARDIAL INFARCTION [None]
  - RENAL DISORDER [None]
